FAERS Safety Report 7398741-X (Version None)
Quarter: 2011Q2

REPORT INFORMATION
  Report Type: 
  Country: None (occurrence: None)
  Receive Date: 20110401
  Receipt Date: 20110401
  Transmission Date: 20111010
  Serious: Yes (Other)
  Sender: FDA-Public Use
  Company Number: None

PATIENT
  Age: 23 Year
  Sex: Female
  Weight: 43.0917 kg

DRUGS (2)
  1. CLOMIPHENE CITRATE [Suspect]
     Indication: OVULATION INDUCTION
     Dosage: 1 DAILY PO
     Route: 048
     Dates: start: 20110308, end: 20110312
  2. PROMETRIUM [Concomitant]

REACTIONS (6)
  - NAUSEA [None]
  - POLLAKIURIA [None]
  - FLATULENCE [None]
  - ADNEXA UTERI PAIN [None]
  - POLYCYSTIC OVARIES [None]
  - ABDOMINAL DISTENSION [None]
